FAERS Safety Report 4527146-1 (Version None)
Quarter: 2004Q4

REPORT INFORMATION
  Report Type: 
  Country: None (occurrence: None)
  Receive Date: 20041126
  Receipt Date: 20040909
  Transmission Date: 20050328
  Serious: Yes (Hospitalization)
  Sender: FDA-Public Use
  Company Number: 04P-163-0272763-00

PATIENT
  Age: 50 Year
  Sex: Male

DRUGS (4)
  1. DEPAKOTE ER [Suspect]
     Indication: BIPOLAR DISORDER
     Dosage: 1500 MG, 1 IN 1 D, ORAL
     Route: 048
     Dates: start: 20040902, end: 20040905
  2. DEPAKENE [Suspect]
     Indication: BIPOLAR DISORDER
     Dosage: 750 MG, 2 IN 1 D, ORAL
     Route: 048
     Dates: start: 20020101, end: 20040901
  3. LILTHIUM [Concomitant]
  4. QUETIAPINE FUMARATE [Concomitant]

REACTIONS (4)
  - ANAPHYLACTIC REACTION [None]
  - OEDEMA PERIPHERAL [None]
  - RASH [None]
  - URTICARIA [None]
